FAERS Safety Report 23969917 (Version 1)
Quarter: 2024Q2

REPORT INFORMATION
  Report Type: Spontaneous
  Country: CA (occurrence: CA)
  Receive Date: 20240613
  Receipt Date: 20240613
  Transmission Date: 20240716
  Serious: Yes (Life-Threatening, Hospitalization, Other)
  Sender: FDA-Public Use
  Company Number: CA-BoehringerIngelheim-2024-BI-033548

PATIENT
  Age: 44 Year
  Sex: Female

DRUGS (2)
  1. DIPYRIDAMOLE [Suspect]
     Active Substance: DIPYRIDAMOLE
     Indication: Troponin increased
     Dosage: ONCE
     Route: 042
  2. DIPYRIDAMOLE [Suspect]
     Active Substance: DIPYRIDAMOLE
     Indication: Sepsis

REACTIONS (2)
  - Cardio-respiratory arrest [Recovered/Resolved]
  - Hypersensitivity [Recovered/Resolved]
